FAERS Safety Report 8135536-3 (Version None)
Quarter: 2012Q1

REPORT INFORMATION
  Report Type: 
  Country: None (occurrence: None)
  Receive Date: 20120214
  Receipt Date: 20120203
  Transmission Date: 20120608
  Serious: Yes (Death, Other)
  Sender: FDA-Public Use
  Company Number: US-BAXTER-2010BH002626

PATIENT
  Age: 72 Year
  Sex: Female
  Weight: 45 kg

DRUGS (35)
  1. VANCOMYCIN [Concomitant]
     Indication: CLOSTRIDIUM DIFFICILE COLITIS
     Route: 048
  2. METRONIDAZOLE [Concomitant]
     Indication: PRODUCT USED FOR UNKNOWN INDICATION
     Route: 065
  3. HEPARIN SODIUM INJECTION [Suspect]
     Route: 040
     Dates: start: 20071210, end: 20071223
  4. HEPARIN SODIUM INJECTION [Suspect]
     Route: 042
     Dates: start: 20071210, end: 20071223
  5. HEPARIN SODIUM INJECTION [Suspect]
     Route: 058
     Dates: start: 20071105, end: 20071105
  6. RENAGEL [Concomitant]
     Indication: PRODUCT USED FOR UNKNOWN INDICATION
     Route: 065
  7. POTASSIUM [Concomitant]
     Indication: ELECTROLYTE SUBSTITUTION THERAPY
     Route: 042
  8. LEVOPHED [Concomitant]
     Indication: HYPOTENSION
     Route: 065
  9. HEPARIN SODIUM INJECTION [Suspect]
     Route: 065
     Dates: start: 20070903, end: 20071107
  10. HEPARIN SODIUM INJECTION [Suspect]
     Route: 042
     Dates: start: 20071123, end: 20071214
  11. HEPARIN SODIUM INJECTION [Suspect]
     Route: 065
     Dates: start: 20071123, end: 20071214
  12. HEPARIN SODIUM INJECTION [Suspect]
     Route: 058
     Dates: start: 20071107, end: 20071107
  13. MULTI-VITAMINS [Concomitant]
     Indication: PRODUCT USED FOR UNKNOWN INDICATION
     Route: 048
  14. DIGOXIN [Concomitant]
     Indication: TACHYCARDIA
     Route: 065
  15. NARCAN [Concomitant]
     Indication: PRODUCT USED FOR UNKNOWN INDICATION
     Route: 065
     Dates: start: 20071225, end: 20071225
  16. HEPARIN SODIUM INJECTION [Suspect]
     Route: 040
     Dates: start: 20071102, end: 20071107
  17. HEPARIN SODIUM INJECTION [Suspect]
     Route: 065
     Dates: start: 20071217, end: 20071223
  18. COLESTIPOL HYDROCHLORIDE [Concomitant]
     Indication: PRODUCT USED FOR UNKNOWN INDICATION
     Route: 065
  19. SODIUM CHLORIDE [Concomitant]
     Indication: HYPOTENSION
     Route: 042
  20. HEPARIN SODIUM INJECTION [Suspect]
     Route: 040
     Dates: start: 20071107, end: 20071107
  21. HEPARIN SODIUM INJECTION [Suspect]
     Route: 042
     Dates: start: 20071102, end: 20071107
  22. HEPARIN SODIUM INJECTION [Suspect]
     Route: 058
     Dates: start: 20071106, end: 20071106
  23. ATENOLOL [Concomitant]
     Indication: PRODUCT USED FOR UNKNOWN INDICATION
     Route: 048
  24. CYPROHEPTADINE HCL [Concomitant]
     Indication: PRODUCT USED FOR UNKNOWN INDICATION
     Route: 048
  25. HEPARIN SODIUM INJECTION [Suspect]
     Indication: HAEMODIALYSIS
     Route: 040
     Dates: start: 20070903, end: 20071031
  26. CHOLESTYRAMINE [Concomitant]
     Indication: PRODUCT USED FOR UNKNOWN INDICATION
     Route: 048
  27. PERCOCET [Concomitant]
     Indication: PAIN
     Route: 048
  28. ESOMEPRAZOLE [Concomitant]
     Indication: PRODUCT USED FOR UNKNOWN INDICATION
     Route: 048
  29. WARFARIN SODIUM [Concomitant]
     Indication: DEEP VEIN THROMBOSIS
     Route: 065
  30. HEPARIN SODIUM 5,000 UNITS IN DEXTROSE 5% [Suspect]
     Indication: PRODUCT USED FOR UNKNOWN INDICATION
     Route: 042
     Dates: start: 20071107
  31. HEPARIN SODIUM INJECTION [Suspect]
     Route: 042
     Dates: start: 20070903, end: 20071031
  32. HEPARIN SODIUM INJECTION [Suspect]
     Route: 040
     Dates: start: 20071123, end: 20071214
  33. HEPARIN SODIUM INJECTION [Suspect]
     Route: 058
     Dates: start: 20071106, end: 20071106
  34. CALCIUM CARBONATE [Concomitant]
     Indication: PRODUCT USED FOR UNKNOWN INDICATION
     Route: 048
  35. EPOETIN ALFA [Concomitant]
     Indication: DIALYSIS
     Route: 065

REACTIONS (14)
  - CIRCULATORY COLLAPSE [None]
  - ABDOMINAL PAIN [None]
  - DECREASED APPETITE [None]
  - FLANK PAIN [None]
  - ATRIAL FIBRILLATION [None]
  - JUGULAR VEIN THROMBOSIS [None]
  - NAUSEA [None]
  - CLOSTRIDIUM DIFFICILE COLITIS [None]
  - SEPSIS [None]
  - GASTRIC INFECTION [None]
  - VOMITING [None]
  - RENAL FAILURE [None]
  - HYPOTENSION [None]
  - ASTHENIA [None]
